FAERS Safety Report 4909022-5 (Version None)
Quarter: 2006Q1

REPORT INFORMATION
  Report Type: 
  Country: None (occurrence: None)
  Receive Date: 20060213
  Receipt Date: 20051223
  Transmission Date: 20060701
  Serious: Yes (Congenital Anomaly)
  Sender: FDA-Public Use
  Company Number: JP-BOEHRINGER INGELHEIM PHARMACEUTICALS, INC.-2005-BP-21797BP

PATIENT
  Sex: Male

DRUGS (5)
  1. VIRAMUNE [Suspect]
     Route: 015
     Dates: start: 20010201, end: 20010214
  2. VIRAMUNE [Suspect]
     Route: 015
     Dates: start: 20010215, end: 20010627
  3. ZIDOVUDINE [Suspect]
     Route: 015
     Dates: start: 20010201, end: 20010627
  4. ZIDOVUDINE [Suspect]
     Route: 015
     Dates: start: 20010508, end: 20010508
  5. EPIVIR [Suspect]
     Route: 015
     Dates: start: 20010201, end: 20010627

REACTIONS (5)
  - ACCESSORY AURICLE [None]
  - ANAEMIA [None]
  - ANAEMIA NEONATAL [None]
  - DRUG EXPOSURE DURING PREGNANCY [None]
  - PREMATURE BABY [None]
